FAERS Safety Report 9221894 (Version 2)
Quarter: 2013Q3

REPORT INFORMATION
  Report Type: Spontaneous
  Country: FI (occurrence: None)
  Receive Date: 20130408
  Receipt Date: 20130911
  Transmission Date: 20140515
  Serious: Yes (Life-Threatening)
  Sender: FDA-Public Use
  Company Number: SYM-2013-02294

PATIENT
  Age: 56 Year
  Sex: Male

DRUGS (8)
  1. 5-FU [Suspect]
     Indication: COLORECTAL CANCER METASTATIC
     Route: 040
     Dates: start: 20121101, end: 20121101
  2. IRINOTECAN [Suspect]
     Indication: COLORECTAL CANCER METASTATIC
     Route: 041
     Dates: start: 20121101, end: 20121101
  3. LEUCOVORIN [Suspect]
     Indication: COLORECTAL CANCER METASTATIC
     Route: 041
     Dates: start: 20121101, end: 20121101
  4. AFLIBERCEPT [Suspect]
     Indication: COLORECTAL CANCER METASTATIC
     Route: 041
     Dates: start: 20121101, end: 20121101
  5. PRIMPERAN (METOCLOPRAMIDE HYDROCHLORIDE) [Concomitant]
  6. SEROTONIN ANTAGONISTS [Concomitant]
  7. CALCIUM CHANNEL BLOCKERS [Concomitant]
  8. LANSOPRAZOLE [Concomitant]

REACTIONS (1)
  - Hypotension [None]
